FAERS Safety Report 9685378 (Version 2)
Quarter: 2013Q4

REPORT INFORMATION
  Report Type: Spontaneous
  Country: JP (occurrence: JP)
  Receive Date: 20131113
  Receipt Date: 20131220
  Transmission Date: 20140711
  Serious: Yes (Other)
  Sender: FDA-Public Use
  Company Number: JP-JNJFOC-20131106274

PATIENT
  Age: 69 Year
  Sex: Male
  Weight: 70 kg

DRUGS (9)
  1. XARELTO [Suspect]
     Indication: ATRIAL FIBRILLATION
     Route: 048
     Dates: start: 20130921
  2. XARELTO [Suspect]
     Indication: CEREBROVASCULAR ACCIDENT PROPHYLAXIS
     Route: 048
     Dates: start: 20130921
  3. LIPITOR [Concomitant]
     Indication: DYSLIPIDAEMIA
     Route: 048
  4. ZYLORIC [Concomitant]
     Indication: HYPERURICAEMIA
     Route: 048
  5. DIOVAN [Concomitant]
     Indication: HYPERTENSION
     Route: 048
  6. AMLODIN [Concomitant]
     Indication: HYPERTENSION
     Route: 048
  7. TALTIRELIN [Concomitant]
     Indication: MULTIPLE SYSTEM ATROPHY
     Route: 048
  8. FLIVAS [Concomitant]
     Indication: BENIGN PROSTATIC HYPERPLASIA
     Route: 048
  9. DUTASTERIDE [Concomitant]
     Indication: BENIGN PROSTATIC HYPERPLASIA
     Route: 048

REACTIONS (1)
  - Haemorrhage subcutaneous [Recovered/Resolved]
